FAERS Safety Report 18762682 (Version 1)
Quarter: 2021Q1

REPORT INFORMATION
  Report Type: Spontaneous
  Country: US (occurrence: US)
  Receive Date: 20210120
  Receipt Date: 20210120
  Transmission Date: 20210419
  Serious: Yes (Death, Other)
  Sender: FDA-Public Use
  Company Number: US-PFIZER INC-2021034822

PATIENT
  Age: 72 Year
  Sex: Male

DRUGS (1)
  1. INLYTA [Suspect]
     Active Substance: AXITINIB
     Dosage: 5 MG, 2X/DAY
     Route: 048

REACTIONS (6)
  - Pneumonia [Fatal]
  - Sepsis [Fatal]
  - Renal disorder [Fatal]
  - Prostate cancer [Unknown]
  - Neoplasm progression [Fatal]
  - Second primary malignancy [Unknown]
